FAERS Safety Report 18244481 (Version 1)
Quarter: 2020Q3

REPORT INFORMATION
  Report Type: Spontaneous
  Country: CN (occurrence: CN)
  Receive Date: 20200908
  Receipt Date: 20200908
  Transmission Date: 20201103
  Serious: Yes (Other)
  Sender: FDA-Public Use
  Company Number: CN-INCYTE CORPORATION-2020IN008695

PATIENT

DRUGS (1)
  1. JAKAVI [Suspect]
     Active Substance: RUXOLITINIB
     Indication: PRIMARY MYELOFIBROSIS
     Dosage: 4 DF, QD (FOR ONE MONTH)
     Route: 048

REACTIONS (8)
  - Gastric ulcer [Unknown]
  - Night sweats [Unknown]
  - Platelet count decreased [Unknown]
  - Weight decreased [Unknown]
  - Therapeutic response unexpected [Unknown]
  - Haemoglobin abnormal [Unknown]
  - Inappropriate schedule of product administration [Unknown]
  - Poor quality sleep [Unknown]
